FAERS Safety Report 4666810-0 (Version None)
Quarter: 2005Q2

REPORT INFORMATION
  Report Type: 
  Country: None (occurrence: None)
  Receive Date: 20050519
  Receipt Date: 20020531
  Transmission Date: 20051028
  Serious: Yes (Hospitalization)
  Sender: FDA-Public Use
  Company Number: NO-MERCK-0206NOR00002

PATIENT
  Age: 53 Year
  Sex: Female

DRUGS (8)
  1. ZOCOR [Suspect]
     Indication: HYPERCHOLESTEROLAEMIA
     Route: 048
     Dates: start: 19980121, end: 20020401
  2. ZOCOR [Suspect]
     Indication: DIABETES MELLITUS NON-INSULIN-DEPENDENT
     Route: 048
     Dates: start: 19980121, end: 20020401
  3. NEFAZODONE HYDROCHLORIDE [Suspect]
     Indication: DEPRESSION
     Route: 048
     Dates: start: 20020227, end: 20020401
  4. ATENOLOL [Concomitant]
     Route: 065
  5. METFORMIN HYDROCHLORIDE [Concomitant]
     Route: 065
  6. ASPIRIN AND MAGNESIUM OXIDE [Concomitant]
     Route: 065
  7. INSULIN HUMAN, ISOPHANE [Concomitant]
     Route: 065
  8. VASOTEC [Concomitant]
     Route: 065

REACTIONS (2)
  - RENAL IMPAIRMENT [None]
  - RHABDOMYOLYSIS [None]
